FAERS Safety Report 5957978-4 (Version None)
Quarter: 2008Q4

REPORT INFORMATION
  Report Type: 
  Country: None (occurrence: None)
  Receive Date: 20081119
  Receipt Date: 20081111
  Transmission Date: 20090506
  Serious: Yes (Other)
  Sender: FDA-Public Use
  Company Number: IT-AVENTIS-200815495EU

PATIENT
  Age: 51 Year
  Sex: Male

DRUGS (6)
  1. RILUTEK [Suspect]
     Indication: AMYOTROPHIC LATERAL SCLEROSIS
     Route: 048
     Dates: start: 20060101
  2. SELEPARINA                         /00889603/ [Concomitant]
     Dosage: DOSE: UNK
  3. LASITONE [Concomitant]
     Dosage: DOSE: UNK
     Route: 048
  4. FUROSEMIDE [Concomitant]
     Dosage: DOSE: UNK
     Route: 048
  5. ALPRAZOLAM [Concomitant]
     Dosage: DOSE: UNK
  6. FLUIMUCIL                          /00082801/ [Concomitant]
     Indication: CHRONIC OBSTRUCTIVE PULMONARY DISEASE
     Route: 048

REACTIONS (2)
  - ELECTROCARDIOGRAM QT PROLONGED [None]
  - HYPOKALAEMIA [None]
